FAERS Safety Report 5695438-9 (Version None)
Quarter: 2008Q2

REPORT INFORMATION
  Report Type: 
  Country: None (occurrence: None)
  Receive Date: 20080403
  Receipt Date: 20080318
  Transmission Date: 20081010
  Serious: Yes (Death)
  Sender: FDA-Public Use
  Company Number: 1-15910501

PATIENT
  Sex: Male

DRUGS (1)
  1. FENTANYL [Suspect]
     Dosage: TRANSDERMAL
     Route: 062

REACTIONS (1)
  - SUDDEN DEATH [None]
